FAERS Safety Report 25679318 (Version 3)
Quarter: 2025Q3

REPORT INFORMATION
  Report Type: Spontaneous
  Country: US (occurrence: US)
  Receive Date: 20250814
  Receipt Date: 20250910
  Transmission Date: 20251021
  Serious: No
  Sender: BIOGEN
  Company Number: US-BIOGEN-2025BI01319522

PATIENT
  Sex: Male

DRUGS (1)
  1. VUMERITY [Suspect]
     Active Substance: DIROXIMEL FUMARATE
     Indication: Multiple sclerosis
     Route: 050
     Dates: start: 20210812

REACTIONS (3)
  - Intentional product misuse [Not Recovered/Not Resolved]
  - White blood cell count abnormal [Recovered/Resolved]
  - Lymphocyte count decreased [Not Recovered/Not Resolved]

NARRATIVE: CASE EVENT DATE: 20230101
